FAERS Safety Report 13884935 (Version 2)
Quarter: 2017Q4

REPORT INFORMATION
  Report Type: Spontaneous
  Country: US (occurrence: US)
  Receive Date: 20170821
  Receipt Date: 20171006
  Transmission Date: 20180320
  Serious: Yes (Other)
  Sender: FDA-Public Use
  Company Number: US-PFIZER INC-2017354480

PATIENT
  Age: 67 Year
  Sex: Female
  Weight: 68 kg

DRUGS (8)
  1. ANASTROZOLE. [Concomitant]
     Active Substance: ANASTROZOLE
     Dosage: 1 MG, 1X/DAY
  2. DIAMOX /00016901/ [Concomitant]
     Active Substance: ACETAZOLAMIDE
     Dosage: 500 MG, 1X/DAY
  3. HYDROCHLOROTHIAZIDE. [Concomitant]
     Active Substance: HYDROCHLOROTHIAZIDE
     Indication: DIURETIC THERAPY
     Dosage: UNK
  4. METFORMIN [Concomitant]
     Active Substance: METFORMIN HYDROCHLORIDE
     Indication: DIABETES MELLITUS
     Dosage: 1000 MG, 1X/DAY
  5. ALPHAGAN P [Concomitant]
     Active Substance: BRIMONIDINE TARTRATE
     Indication: GLAUCOMA
     Dosage: IN EACH EYE, 2X/DAY
     Route: 047
  6. XALATAN [Suspect]
     Active Substance: LATANOPROST
     Dosage: IN EACH EYE AT NIGHT, 1X/DAY
     Route: 047
  7. JANUVIA [Concomitant]
     Active Substance: SITAGLIPTIN PHOSPHATE
     Indication: DIABETES MELLITUS
     Dosage: 100 MG, 1X/DAY
  8. XALATAN [Suspect]
     Active Substance: LATANOPROST
     Indication: GLAUCOMA
     Dosage: IN EACH EYE AT NIGHT, 1X/DAY
     Route: 047

REACTIONS (1)
  - Breast cancer [Unknown]
